FAERS Safety Report 7183293-X (Version None)
Quarter: 2010Q4

REPORT INFORMATION
  Report Type: 
  Country: None (occurrence: None)
  Receive Date: 20101222
  Receipt Date: 20100628
  Transmission Date: 20110411
  Serious: Yes (Other)
  Sender: FDA-Public Use
  Company Number: A0869095A

PATIENT
  Age: 15 Year
  Sex: Female

DRUGS (1)
  1. FLONASE [Suspect]
     Route: 045
     Dates: start: 20100201

REACTIONS (1)
  - ANOSMIA [None]
